FAERS Safety Report 10227125 (Version 2)
Quarter: 2015Q2

REPORT INFORMATION
  Report Type: Spontaneous
  Country: FR (occurrence: None)
  Receive Date: 20140606
  Receipt Date: 20150519
  Transmission Date: 20150821
  Serious: Yes (Death, Hospitalization)
  Sender: FDA-Public Use
  Company Number: 7296207

PATIENT
  Age: 93 Year
  Sex: Female

DRUGS (9)
  1. CORDARONE [Suspect]
     Active Substance: AMIODARONE HYDROCHLORIDE
     Indication: PRODUCT USED FOR UNKNOWN INDICATION
     Route: 048
     Dates: start: 20140225, end: 20140301
  2. CALCIPARINE [Suspect]
     Active Substance: HEPARIN CALCIUM
     Indication: THROMBOSIS
     Dosage: 0.9 ML (0.3 ML, 3 IN 1 D)
     Route: 058
     Dates: start: 20140221, end: 20140301
  3. LEVOTHYROX (LEVOTHYROXINE SODIUM) (25 MICROGRAM) [Suspect]
     Active Substance: LEVOTHYROXINE
     Indication: PRODUCT USED FOR UNKNOWN INDICATION
     Route: 048
     Dates: start: 20140224, end: 20140301
  4. KARDEGIC [Suspect]
     Active Substance: ASPIRIN LYSINE
     Indication: PRODUCT USED FOR UNKNOWN INDICATION
     Route: 048
     Dates: start: 20140224, end: 20140301
  5. ROCEPHINE [Suspect]
     Active Substance: CEFTRIAXONE SODIUM
     Indication: PRODUCT USED FOR UNKNOWN INDICATION
     Route: 058
     Dates: start: 20140228, end: 20140301
  6. LASILIX (FUROSEMIDE) [Concomitant]
     Active Substance: FUROSEMIDE
  7. COUMADINE [Suspect]
     Active Substance: WARFARIN SODIUM
     Indication: THROMBOSIS
     Route: 048
     Dates: start: 20140225, end: 20140301
  8. TRINITRINE [Suspect]
     Active Substance: NITROGLYCERIN
     Indication: PRODUCT USED FOR UNKNOWN INDICATION
     Route: 062
     Dates: end: 20140301
  9. DOLIPRANE [Concomitant]
     Active Substance: ACETAMINOPHEN

REACTIONS (2)
  - Gastrointestinal haemorrhage [None]
  - International normalised ratio increased [None]

NARRATIVE: CASE EVENT DATE: 20140301
